FAERS Safety Report 22005330 (Version 1)
Quarter: 2023Q1

REPORT INFORMATION
  Report Type: Spontaneous
  Country: US (occurrence: US)
  Receive Date: 20230217
  Receipt Date: 20230217
  Transmission Date: 20230418
  Serious: No
  Sender: FDA-Public Use
  Company Number: US-UPSHER-SMITH LABORATORIES, LLC-2022USL00245

PATIENT
  Sex: Female

DRUGS (1)
  1. ZEMBRACE SYMTOUCH [Suspect]
     Active Substance: SUMATRIPTAN SUCCINATE
     Indication: Migraine
     Dosage: 3 MG INJECTION AS NEEDED

REACTIONS (1)
  - Injection site urticaria [Recovering/Resolving]

NARRATIVE: CASE EVENT DATE: 20220101
